FAERS Safety Report 6908312-4 (Version None)
Quarter: 2010Q3

REPORT INFORMATION
  Report Type: 
  Country: None (occurrence: None)
  Receive Date: 20100805
  Receipt Date: 20100729
  Transmission Date: 20110219
  Serious: Yes (Life-Threatening)
  Sender: FDA-Public Use
  Company Number: JP-ROCHE-718595

PATIENT
  Sex: Female

DRUGS (43)
  1. TOCILIZUMAB [Suspect]
     Indication: RHEUMATOID ARTHRITIS
     Route: 041
     Dates: start: 20080821, end: 20080821
  2. TOCILIZUMAB [Suspect]
     Route: 041
     Dates: start: 20080918, end: 20080918
  3. TOCILIZUMAB [Suspect]
     Route: 041
     Dates: start: 20081016, end: 20081016
  4. TOCILIZUMAB [Suspect]
     Route: 041
     Dates: start: 20081211, end: 20081211
  5. TOCILIZUMAB [Suspect]
     Route: 041
     Dates: start: 20090115, end: 20090115
  6. TOCILIZUMAB [Suspect]
     Route: 041
     Dates: start: 20090212, end: 20090801
  7. TOCILIZUMAB [Suspect]
     Route: 041
     Dates: start: 20090910, end: 20090910
  8. TOCILIZUMAB [Suspect]
     Route: 041
     Dates: start: 20091008, end: 20091008
  9. TOCILIZUMAB [Suspect]
     Route: 041
     Dates: start: 20091105, end: 20091105
  10. TOCILIZUMAB [Suspect]
     Route: 041
     Dates: start: 20091203, end: 20091203
  11. TOCILIZUMAB [Suspect]
     Route: 041
     Dates: start: 20100107, end: 20100107
  12. TOCILIZUMAB [Suspect]
     Route: 041
     Dates: start: 20100204, end: 20100204
  13. TOCILIZUMAB [Suspect]
     Route: 041
     Dates: start: 20100304, end: 20100304
  14. TOCILIZUMAB [Suspect]
     Route: 041
     Dates: start: 20100401, end: 20100401
  15. RHEUMATREX [Suspect]
     Indication: RHEUMATOID ARTHRITIS
     Route: 048
     Dates: end: 20100427
  16. LOXOPROFEN SODIUM [Suspect]
     Indication: RHEUMATOID ARTHRITIS
     Dosage: DOSAGE FORM: PERORAL AGENT
     Route: 048
  17. PREDONINE [Concomitant]
     Route: 048
  18. LOXONIN [Concomitant]
     Dosage: DOSAGE FORM: PERORAL AGENT
     Route: 048
  19. MUCOSTA [Concomitant]
     Dosage: DOSAGE FORM: PERORAL AGENT
     Route: 048
  20. LASIX [Concomitant]
     Dosage: DOSAGE FORM: PERORAL AGENT
     Route: 048
  21. LENDORMIN [Concomitant]
     Route: 048
  22. GASTER [Concomitant]
     Route: 048
  23. KETAS [Concomitant]
     Route: 048
  24. DEPAS [Concomitant]
     Dosage: DOSAGE FORM: PERORAL AGENT
     Route: 048
  25. CARNACULIN [Concomitant]
     Route: 048
  26. DIAZEPAM [Concomitant]
     Dosage: DOSAGE FORM: PERORAL AGENT
     Route: 048
  27. TIZANIDINE HCL [Concomitant]
     Dosage: DOSAGE FORM: PERORAL AGENT
     Route: 048
  28. CEROCRAL [Concomitant]
     Dosage: DOSAGE FORM: PERORAL AGENT
     Route: 048
  29. CEPHADOL [Concomitant]
     Dosage: DOSAGE FORM: PERORAL AGENT
     Route: 048
  30. POSTERISAN [Concomitant]
     Dosage: DOSAGE FORM: OINTMENT AND CREAM
     Route: 054
  31. ONEALFA [Concomitant]
     Route: 048
  32. NEUROTROPIN [Concomitant]
     Route: 048
  33. CYTOTECT [Concomitant]
     Route: 048
  34. METHYCOBAL [Concomitant]
     Dosage: DOSAGE FORM: PERORAL AGENT
     Route: 048
  35. FAMOTIDINE [Concomitant]
     Route: 048
  36. LIPITOR [Concomitant]
     Route: 048
  37. MAGNESIUM OXIDE [Concomitant]
     Dosage: DOSAGE FORM: PERORAL AGENT
     Route: 048
  38. EVOXAC [Concomitant]
     Route: 048
  39. ALLEGRA [Concomitant]
     Route: 048
  40. MUCODYNE [Concomitant]
     Dosage: DOSAGE FORM: PERORAL AGENT
     Route: 048
  41. CLARITHROMYCIN [Concomitant]
     Dosage: DOSAGE FORM: PERORAL AGENT
     Route: 048
  42. FLUNASE [Concomitant]
     Dosage: ROUTE: NASAL. DOSAGE FORM: NASAL DROPS
     Route: 050
  43. FOLIAMIN [Concomitant]
     Dosage: DOSAGE FORM: PERORAL AGENT
     Route: 048
     Dates: end: 20100427

REACTIONS (2)
  - PLATELET COUNT DECREASED [None]
  - WHITE BLOOD CELL COUNT DECREASED [None]
